FAERS Safety Report 8815358 (Version 3)
Quarter: 2013Q3

REPORT INFORMATION
  Report Type: Spontaneous
  Country: US (occurrence: US)
  Receive Date: 20120928
  Receipt Date: 20130731
  Transmission Date: 20140515
  Serious: No
  Sender: FDA-Public Use
  Company Number: US-009507513-1209USA010336

PATIENT
  Age: 30 Year
  Sex: Female
  Weight: 84.35 kg

DRUGS (2)
  1. IMPLANON [Suspect]
     Dosage: 1 DF, UNK
     Route: 059
     Dates: start: 20120423, end: 20121022
  2. IMPLANON [Suspect]
     Dosage: UNK
     Route: 059
     Dates: end: 20130516

REACTIONS (3)
  - Device kink [Recovered/Resolved]
  - Product quality issue [Unknown]
  - No adverse event [Unknown]
